FAERS Safety Report 5810863-0 (Version None)
Quarter: 2008Q3

REPORT INFORMATION
  Report Type: 
  Country: None (occurrence: None)
  Receive Date: 20080710
  Receipt Date: 20080626
  Transmission Date: 20090109
  Serious: No
  Sender: FDA-Public Use
  Company Number: 2008BI014367

PATIENT
  Age: 41 Year
  Sex: Female

DRUGS (2)
  1. TYSABRI [Suspect]
     Indication: MULTIPLE SCLEROSIS
     Dosage: 300 MG; QM; IV
     Route: 042
     Dates: start: 20070613, end: 20071017
  2. TYSABRI [Suspect]
     Indication: MULTIPLE SCLEROSIS
     Dosage: 300 MG; QM; IV
     Route: 042
     Dates: start: 20071228, end: 20080128

REACTIONS (6)
  - ANAEMIA [None]
  - FIBRIN D DIMER INCREASED [None]
  - HYPOCALCAEMIA [None]
  - HYPOKALAEMIA [None]
  - OEDEMA PERIPHERAL [None]
  - TREATMENT NONCOMPLIANCE [None]
